FAERS Safety Report 16090382 (Version 1)
Quarter: 2019Q1

REPORT INFORMATION
  Report Type: Spontaneous
  Country: US (occurrence: US)
  Receive Date: 20190319
  Receipt Date: 20190319
  Transmission Date: 20190418
  Serious: No
  Sender: FDA-Public Use
  Company Number: US-PERRIGO-18US002460

PATIENT
  Sex: Male
  Weight: 77.1 kg

DRUGS (3)
  1. NICOTINE POLACRILEX [Suspect]
     Active Substance: NICOTINE
     Dosage: 4 MG, UP TO QID
     Route: 002
     Dates: start: 20180227
  2. NICOTINE POLACRILEX [Suspect]
     Active Substance: NICOTINE
     Indication: SMOKING CESSATION THERAPY
     Dosage: 4 MG, UP TO TID
     Route: 002
     Dates: start: 2017, end: 2017
  3. LIPID MODIFYING AGENTS [Concomitant]
     Active Substance: UNSPECIFIED INGREDIENT
     Indication: BLOOD CHOLESTEROL
     Dosage: UNK
     Route: 065

REACTIONS (2)
  - Nausea [Unknown]
  - Oral discomfort [Unknown]

NARRATIVE: CASE EVENT DATE: 2017
